FAERS Safety Report 8486255-5 (Version None)
Quarter: 2012Q3

REPORT INFORMATION
  Report Type: 
  Country: None (occurrence: None)
  Receive Date: 20120703
  Receipt Date: 20120627
  Transmission Date: 20120928
  Serious: Yes (Hospitalization)
  Sender: FDA-Public Use
  Company Number: JP-PFIZER INC-2012100648

PATIENT
  Age: 44 Year
  Sex: Male
  Weight: 56.7 kg

DRUGS (9)
  1. ZOLOFT [Suspect]
     Dosage: 75 MG, 1X/DAY
     Route: 048
     Dates: start: 20120220, end: 20120227
  2. CYMBALTA [Suspect]
     Dosage: 40 MG, 1X/DAY
     Route: 048
     Dates: start: 20120327, end: 20120402
  3. GASMOTIN [Concomitant]
     Dosage: 5 MG, 3X/DAY
     Route: 048
     Dates: start: 20120130, end: 20120409
  4. ZOLOFT [Suspect]
     Dosage: 50 MG, 1X/DAY
     Route: 048
     Dates: start: 20120213, end: 20120219
  5. CYMBALTA [Suspect]
     Indication: DEPRESSION
     Dosage: 20 MG, 1X/DAY
     Route: 048
     Dates: start: 20120319, end: 20120326
  6. ZOLOFT [Suspect]
     Indication: DEPRESSION
     Dosage: 25 MG, 1X/DAY
     Route: 048
     Dates: start: 20120130, end: 20120212
  7. CYMBALTA [Suspect]
     Dosage: 60 MG, 1X/DAY
     Route: 048
     Dates: start: 20120403, end: 20120409
  8. ZOLOFT [Suspect]
     Dosage: 100 MG, 1X/DAY
     Route: 048
     Dates: start: 20120228, end: 20120409
  9. LENDORMIN [Concomitant]
     Dosage: 0.25 MG, 1X/DAY
     Route: 048
     Dates: start: 20120130, end: 20120409

REACTIONS (5)
  - ARTHRALGIA [None]
  - TREMOR [None]
  - FEELING ABNORMAL [None]
  - RHABDOMYOLYSIS [None]
  - VISION BLURRED [None]
